FAERS Safety Report 24203929 (Version 1)
Quarter: 2024Q3

REPORT INFORMATION
  Report Type: Spontaneous
  Country: US (occurrence: US)
  Receive Date: 20240813
  Receipt Date: 20240813
  Transmission Date: 20241017
  Serious: Yes (Death, Other)
  Sender: STRIDES
  Company Number: US-STRIDES ARCOLAB LIMITED-2024SP010004

PATIENT
  Age: 28 Year
  Sex: Male

DRUGS (48)
  1. METHOTREXATE [Suspect]
     Active Substance: METHOTREXATE
     Indication: B-cell type acute leukaemia
     Dosage: UNK AS FOURTH LINE TREATMENT (AS A PART OF SMILE REGIMEN)
     Route: 065
  2. METHOTREXATE [Suspect]
     Active Substance: METHOTREXATE
     Indication: Philadelphia chromosome positive
  3. ETOPOSIDE [Suspect]
     Active Substance: ETOPOSIDE
     Indication: B-cell type acute leukaemia
     Dosage: UNK AS FOURTH LINE TREATMENT (AS A PART OF CCE REGIMEN)
     Route: 065
  4. ETOPOSIDE [Suspect]
     Active Substance: ETOPOSIDE
     Indication: Philadelphia chromosome positive
     Dosage: UNK (CCE REGIMEN )
     Route: 065
  5. DEXAMETHASONE [Suspect]
     Active Substance: DEXAMETHASONE
     Indication: B-cell type acute leukaemia
     Dosage: UNK AS FOURTH LINE TREATMENT (AS A PART OF SMILE REGIMEN)
     Route: 065
  6. DEXAMETHASONE [Suspect]
     Active Substance: DEXAMETHASONE
     Indication: Philadelphia chromosome positive
     Dosage: UNK (AS SECOND LINE TREATMENT REGIMEN)
     Route: 065
  7. DEXAMETHASONE [Suspect]
     Active Substance: DEXAMETHASONE
     Dosage: UNK AS FIRST LINE TREATMENT (AS A PART OF HYPER-CVAD REGIMEN)
     Route: 065
  8. IFOSFAMIDE [Suspect]
     Active Substance: IFOSFAMIDE
     Indication: B-cell type acute leukaemia
     Dosage: UNK AS FOURTH LINE TREATMENT (AS A PART OF SMILE REGIMEN)
     Route: 065
  9. IFOSFAMIDE [Suspect]
     Active Substance: IFOSFAMIDE
     Indication: Philadelphia chromosome positive
  10. ASPARAGINASE [Suspect]
     Active Substance: ASPARAGINASE
     Indication: B-cell type acute leukaemia
     Dosage: UNK AS FOURTH LINE TREATMENT (AS A PART OF SMILE REGIMEN)
     Route: 065
  11. ASPARAGINASE [Suspect]
     Active Substance: ASPARAGINASE
     Indication: Philadelphia chromosome positive
  12. CLADRIBINE [Suspect]
     Active Substance: CLADRIBINE
     Indication: B-cell type acute leukaemia
     Dosage: UNK AS FOURTH LINE TREATMENT (AS A PART OF CCE REGIMEN)
     Route: 065
  13. CLADRIBINE [Suspect]
     Active Substance: CLADRIBINE
     Indication: Philadelphia chromosome positive
  14. CYTARABINE [Suspect]
     Active Substance: CYTARABINE
     Indication: B-cell type acute leukaemia
     Dosage: UNK AS FOURTH LINE TREATMENT (AS A PART OF CCE REGIMEN)
     Route: 065
  15. CYTARABINE [Suspect]
     Active Substance: CYTARABINE
     Indication: Philadelphia chromosome positive
  16. DASATINIB [Suspect]
     Active Substance: DASATINIB
     Indication: B-cell type acute leukaemia
     Dosage: UNK AS FIRST LINE TREATMENT (AS A PART OF HYPER-CVAD REGIMEN)
     Route: 065
  17. DASATINIB [Suspect]
     Active Substance: DASATINIB
     Indication: Philadelphia chromosome positive
     Dosage: UNK AS FOURTH LINE TREATMENT, CCE REGIMEN
     Route: 065
  18. DASATINIB [Suspect]
     Active Substance: DASATINIB
     Dosage: UNK AS THIRD LINE TREATMENT
     Route: 065
  19. PONATINIB [Suspect]
     Active Substance: PONATINIB
     Indication: B-cell type acute leukaemia
     Dosage: UNK AS FIFTH LINE TREATMENT
     Route: 065
  20. PONATINIB [Suspect]
     Active Substance: PONATINIB
     Indication: Philadelphia chromosome positive
  21. ASCIMINIB [Suspect]
     Active Substance: ASCIMINIB
     Indication: B-cell type acute leukaemia
     Dosage: UNK AS FIFTH LINE TREATMENT
     Route: 065
  22. ASCIMINIB [Suspect]
     Active Substance: ASCIMINIB
     Indication: Philadelphia chromosome positive
  23. NILOTINIB [Suspect]
     Active Substance: NILOTINIB
     Indication: B-cell type acute leukaemia
     Dosage: UNK AS FIRST LINE TREATMENT (AS A PART OF HYPER-CVAD REGIMEN)
     Route: 065
  24. NILOTINIB [Suspect]
     Active Substance: NILOTINIB
     Indication: Philadelphia chromosome positive
  25. CARMUSTINE [Suspect]
     Active Substance: CARMUSTINE
     Indication: Philadelphia chromosome positive
     Dosage: UNK AS FIRST LINE TREATMENT (AS A PART OF HYPER-CVAD REGIMEN)
     Route: 065
  26. CARMUSTINE [Suspect]
     Active Substance: CARMUSTINE
     Indication: B-cell type acute leukaemia
  27. CYTOXAN [Suspect]
     Active Substance: CYCLOPHOSPHAMIDE
     Indication: B-cell type acute leukaemia
     Dosage: UNK AS FIRST LINE TREATMENT (AS A PART OF HYPER-CVAD REGIMEN)
     Route: 065
  28. CYTOXAN [Suspect]
     Active Substance: CYCLOPHOSPHAMIDE
     Indication: Philadelphia chromosome positive
     Dosage: UNK, CYTOXN AS FIRST LINE TREATMENT (AS A PART OF HYPER-CVAD REGIMEN)
     Route: 065
  29. DOXORUBICIN HYDROCHLORIDE [Suspect]
     Active Substance: DOXORUBICIN HYDROCHLORIDE
     Indication: B-cell type acute leukaemia
     Dosage: UNK AS FIRST LINE TREATMENT (AS A PART OF HYPER-CVAD REGIMEN)
     Route: 065
  30. DOXORUBICIN HYDROCHLORIDE [Suspect]
     Active Substance: DOXORUBICIN HYDROCHLORIDE
     Indication: Philadelphia chromosome positive
  31. MERCAPTOPURINE [Suspect]
     Active Substance: MERCAPTOPURINE
     Indication: B-cell type acute leukaemia
     Dosage: UNK AS FIRST LINE TREATMENT (AS A PART OF HYPER-CVAD REGIMEN)
     Route: 065
  32. MERCAPTOPURINE [Suspect]
     Active Substance: MERCAPTOPURINE
     Indication: Philadelphia chromosome positive
  33. VINCRISTINE SULFATE [Suspect]
     Active Substance: VINCRISTINE SULFATE
     Indication: Philadelphia chromosome positive
     Dosage: UNK AS FIRST LINE TREATMENT (AS A PART OF HYPER-CVAD REGIMEN)
     Route: 065
  34. VINCRISTINE SULFATE [Suspect]
     Active Substance: VINCRISTINE SULFATE
     Indication: B-cell type acute leukaemia
  35. DECITABINE [Concomitant]
     Active Substance: DECITABINE
     Indication: B-cell type acute leukaemia
     Dosage: UNK (AS A SECOND LINE TREATMENT)
     Route: 065
  36. DECITABINE [Concomitant]
     Active Substance: DECITABINE
     Indication: Philadelphia chromosome positive
  37. VENETOCLAX [Concomitant]
     Active Substance: VENETOCLAX
     Indication: B-cell type acute leukaemia
     Dosage: UNK (AS A SECOND LINE TREATMENT)
     Route: 065
  38. VENETOCLAX [Concomitant]
     Active Substance: VENETOCLAX
     Indication: Philadelphia chromosome positive
  39. INOTUZUMAB OZOGAMICIN [Concomitant]
     Active Substance: INOTUZUMAB OZOGAMICIN
     Indication: B-cell type acute leukaemia
     Dosage: UNK (AS A SECOND LINE TREATMENT)
     Route: 065
  40. INOTUZUMAB OZOGAMICIN [Concomitant]
     Active Substance: INOTUZUMAB OZOGAMICIN
     Indication: Philadelphia chromosome positive
  41. MITOMYCIN C [Concomitant]
     Active Substance: MITOMYCIN
     Indication: B-cell type acute leukaemia
     Dosage: UNK (A SECOND LINE TREATMENT (AS A PART OF MVP REGIMEN) )
     Route: 065
  42. MITOMYCIN C [Concomitant]
     Active Substance: MITOMYCIN
     Indication: Philadelphia chromosome positive
  43. CISPLATIN [Concomitant]
     Active Substance: CISPLATIN
     Indication: B-cell type acute leukaemia
     Dosage: UNK (A SECOND LINE TREATMENT (AS A PART OF MVP REGIMEN) )
     Route: 065
  44. CISPLATIN [Concomitant]
     Active Substance: CISPLATIN
     Indication: Philadelphia chromosome positive
  45. BLINATUMOMAB [Concomitant]
     Active Substance: BLINATUMOMAB
     Indication: B-cell type acute leukaemia
     Dosage: UNK (A THIRD LINE TREATMENT)
     Route: 065
  46. BLINATUMOMAB [Concomitant]
     Active Substance: BLINATUMOMAB
     Indication: Philadelphia chromosome positive
  47. VINBLASTINE [Concomitant]
     Active Substance: VINBLASTINE
     Indication: B-cell type acute leukaemia
     Dosage: UNK (AS A SECOND LINE TREATMENT (AS A PART OF MVP REGIMEN))
     Route: 065
  48. VINBLASTINE [Concomitant]
     Active Substance: VINBLASTINE
     Indication: Philadelphia chromosome positive

REACTIONS (4)
  - Drug ineffective [Fatal]
  - Condition aggravated [Fatal]
  - Leukaemia recurrent [Unknown]
  - Off label use [Unknown]
